FAERS Safety Report 17502045 (Version 1)
Quarter: 2020Q1

REPORT INFORMATION
  Report Type: Spontaneous
  Country: US (occurrence: US)
  Receive Date: 20200224
  Receipt Date: 20200224
  Transmission Date: 20200409
  Serious: No
  Sender: FDA-Public Use
  Company Number: None

PATIENT
  Age: 66 Year
  Sex: Female
  Weight: 79.38 kg

DRUGS (28)
  1. BUSPIRONE HCL [Concomitant]
     Active Substance: BUSPIRONE HYDROCHLORIDE
  2. ESTRACE [Concomitant]
     Active Substance: ESTRADIOL
  3. DULCOLAX NOS [Concomitant]
     Active Substance: BISACODYL OR DOCUSATE SODIUM
  4. LEXAPRO [Suspect]
     Active Substance: ESCITALOPRAM OXALATE
  5. BUPROPION HCL ER (XL) (WELLBUTRIN) [Concomitant]
  6. LEVOTHYROXINE. [Concomitant]
     Active Substance: LEVOTHYROXINE
  7. VITAMIN D3 [Concomitant]
     Active Substance: CHOLECALCIFEROL
  8. GLUCOSAMINE CHONDROITIN COMPLEX [Concomitant]
     Active Substance: CHONDROITIN SULFATE (BOVINE)\GLUCOSAMINE HYDROCHLORIDE
  9. LEXAPRO [Suspect]
     Active Substance: ESCITALOPRAM OXALATE
     Indication: MAJOR DEPRESSION
     Dosage: ?          QUANTITY:3 DF DOSAGE FORM;?
     Route: 048
  10. BACLOFEN. [Concomitant]
     Active Substance: BACLOFEN
  11. MIRALAX [Concomitant]
     Active Substance: POLYETHYLENE GLYCOL 3350
  12. MELATONIN [Concomitant]
     Active Substance: MELATONIN
  13. ESCITALOPRAM OXLATE (LEXAPRO) [Concomitant]
  14. DEXILANT [Concomitant]
     Active Substance: DEXLANSOPRAZOLE
  15. TYLENOL [Concomitant]
     Active Substance: ACETAMINOPHEN
  16. LOSARTAN POTASSIUM. [Concomitant]
     Active Substance: LOSARTAN POTASSIUM
  17. ZOPIDEM TARTRATE (AMBIEN) [Concomitant]
  18. RESTASIS/SYSTANE [Concomitant]
  19. VITAMIN E [Concomitant]
     Active Substance: .ALPHA.-TOCOPHEROL
  20. TOVIAZ [Concomitant]
     Active Substance: FESOTERODINE FUMARATE
  21. ZOFRAN [Concomitant]
     Active Substance: ONDANSETRON HYDROCHLORIDE
  22. FISH OIL (KRILL) [Concomitant]
  23. MAGNESIUM OXIDE. [Concomitant]
     Active Substance: MAGNESIUM OXIDE
  24. DIGESTIVE ADVANTAGE - DAILY PROBIOTIC [Concomitant]
  25. LEXAPRO [Suspect]
     Active Substance: ESCITALOPRAM OXALATE
     Indication: TOXICITY TO VARIOUS AGENTS
  26. CEVIMELINE HCL [Concomitant]
     Active Substance: CEVIMELINE HYDROCHLORIDE
  27. MOTEGRITY [Concomitant]
     Active Substance: PRUCALOPRIDE SUCCINATE
  28. FLONASE [Concomitant]
     Active Substance: FLUTICASONE PROPIONATE

REACTIONS (2)
  - Sleep talking [None]
  - Confusional state [None]

NARRATIVE: CASE EVENT DATE: 20200115
